FAERS Safety Report 4849573-5 (Version None)
Quarter: 2005Q4

REPORT INFORMATION
  Report Type: 
  Country: None (occurrence: None)
  Receive Date: 20051209
  Receipt Date: 20051201
  Transmission Date: 20060501
  Serious: Yes (Other)
  Sender: FDA-Public Use
  Company Number: US-ABBOTT-05P-163-0318525-00

PATIENT
  Sex: Male
  Weight: 103.6 kg

DRUGS (3)
  1. CLARITHROMYCIN 500MG TABLETS [Suspect]
     Indication: TOOTH ABSCESS
     Route: 048
     Dates: start: 20050828, end: 20050905
  2. CLOZAPINE [Suspect]
     Indication: SCHIZOAFFECTIVE DISORDER
     Route: 048
     Dates: start: 19990901, end: 20050906
  3. CLOZAPINE [Suspect]
     Route: 048
     Dates: start: 20050908

REACTIONS (5)
  - DIZZINESS [None]
  - DROOLING [None]
  - DYSARTHRIA [None]
  - LETHARGY [None]
  - TACHYCARDIA [None]
